FAERS Safety Report 5035001-6 (Version None)
Quarter: 2006Q2

REPORT INFORMATION
  Report Type: 
  Country: None (occurrence: None)
  Receive Date: 20060622
  Receipt Date: 20060607
  Transmission Date: 20061013
  Serious: Yes (Hospitalization)
  Sender: FDA-Public Use
  Company Number: L06-FRA-02355-06

PATIENT
  Age: 25 Year
  Sex: Female

DRUGS (2)
  1. CARBAMAZEPINE [Suspect]
     Indication: PETIT MAL EPILEPSY
     Dosage: 1400 MG DAILY
  2. PHENOBARBITAL TAB [Suspect]
     Indication: PETIT MAL EPILEPSY
     Dosage: 150 MG DAILY

REACTIONS (7)
  - COGNITIVE DISORDER [None]
  - CONDITION AGGRAVATED [None]
  - FEELING DRUNK [None]
  - GAIT DISTURBANCE [None]
  - GRAND MAL CONVULSION [None]
  - MYOCLONUS [None]
  - PETIT MAL EPILEPSY [None]
